FAERS Safety Report 17796310 (Version 1)
Quarter: 2020Q2

REPORT INFORMATION
  Report Type: Spontaneous
  Country: JP (occurrence: JP)
  Receive Date: 20200517
  Receipt Date: 20200517
  Transmission Date: 20200714
  Serious: Yes (Other)
  Sender: FDA-Public Use
  Company Number: NVSJ2020JP004956

PATIENT
  Sex: Male

DRUGS (1)
  1. RITALIN [Suspect]
     Active Substance: METHYLPHENIDATE HYDROCHLORIDE
     Indication: PRODUCT USED FOR UNKNOWN INDICATION
     Dosage: UNK
     Route: 048

REACTIONS (5)
  - Depression [Unknown]
  - Emotional distress [Unknown]
  - Physical deconditioning [Unknown]
  - Anxiety [Unknown]
  - Immobile [Unknown]
